FAERS Safety Report 18382849 (Version 9)
Quarter: 2022Q1

REPORT INFORMATION
  Report Type: Spontaneous
  Country: GB (occurrence: GB)
  Receive Date: 20201014
  Receipt Date: 20220315
  Transmission Date: 20220423
  Serious: Yes (Other)
  Sender: FDA-Public Use
  Company Number: GB-ROCHE-1731053

PATIENT
  Age: 67 Year
  Sex: Female

DRUGS (18)
  1. TRASTUZUMAB [Suspect]
     Active Substance: TRASTUZUMAB
     Indication: Breast cancer metastatic
     Dosage: 620 MILLIGRAM (LOADING DOSE), UNK
     Route: 041
     Dates: start: 20151012
  2. TRASTUZUMAB [Suspect]
     Active Substance: TRASTUZUMAB
     Dosage: 6 MG/KG (MAINTENANCE DOSE), Q3WK
     Route: 042
     Dates: start: 20151102
  3. PERTUZUMAB [Suspect]
     Active Substance: PERTUZUMAB
     Indication: Breast cancer metastatic
     Dosage: 840 MILLIGRAM, LOADING DOSE
     Route: 042
     Dates: start: 20151012
  4. PERTUZUMAB [Suspect]
     Active Substance: PERTUZUMAB
     Dosage: 420 MG (MAINTENANCE DOSE), Q3WK
     Route: 042
     Dates: start: 20151102
  5. PACLITAXEL [Suspect]
     Active Substance: PACLITAXEL
     Indication: Breast cancer metastatic
     Dosage: 140 MG, UNK
     Route: 042
     Dates: start: 20151125, end: 20160302
  6. PACLITAXEL [Suspect]
     Active Substance: PACLITAXEL
     Dosage: 840 MILLIGRAM
     Route: 042
     Dates: start: 20151012
  7. DOCETAXEL [Suspect]
     Active Substance: DOCETAXEL
     Indication: Breast cancer metastatic
     Dosage: 130 MG, Q3WK
     Route: 042
     Dates: start: 20151013, end: 20151013
  8. CHOLECALCIFEROL [Concomitant]
     Active Substance: CHOLECALCIFEROL
     Indication: Osteoporosis
     Dosage: 800 IU, QD
     Route: 048
     Dates: start: 20160821, end: 201611
  9. CHOLECALCIFEROL [Concomitant]
     Active Substance: CHOLECALCIFEROL
     Dosage: UNK, QD
     Route: 048
     Dates: start: 20170203
  10. ALENDRONIC ACID [Concomitant]
     Active Substance: ALENDRONIC ACID
     Indication: Osteoporosis
     Dosage: 70 MG, QWK
     Route: 065
     Dates: start: 20160821, end: 201611
  11. RISEDRONIC ACID [Concomitant]
     Active Substance: RISEDRONIC ACID
     Indication: Prophylaxis
     Dosage: 35 G, UNK (GIVEN FOR THE PREVENTION OSTEOPOROSIS IN POSTMENOPAUSAL WOMEN)
     Route: 048
     Dates: start: 20101007, end: 20160807
  12. LOPERAMIDE HYDROCHLORIDE [Concomitant]
     Active Substance: LOPERAMIDE HYDROCHLORIDE
     Dosage: 2 MG
     Route: 048
     Dates: start: 20151015
  13. ACETAMINOPHEN [Concomitant]
     Active Substance: ACETAMINOPHEN
     Dosage: 500 MG, UNK (PRE MEDICATION)
     Route: 048
     Dates: start: 20151012
  14. CALCIUM CARBONATE\CHOLECALCIFEROL [Concomitant]
     Active Substance: CALCIUM CARBONATE\CHOLECALCIFEROL
     Indication: Prophylaxis
     Dosage: 1.5 GRAM
     Route: 048
     Dates: start: 20101007
  15. CYCLIZINE [Concomitant]
     Active Substance: CYCLIZINE
     Dosage: UNK
  16. DEXAMETHASONE [Concomitant]
     Active Substance: DEXAMETHASONE
     Dosage: UNK
  17. ZOLEDRONIC ACID [Concomitant]
     Active Substance: ZOLEDRONIC ACID
     Indication: Osteoporosis
     Dosage: 5 MILLIGRAM, EVERY 6 MIN
     Route: 042
     Dates: start: 20170203
  18. RISEDRONATE SODIUM [Concomitant]
     Active Substance: RISEDRONATE SODIUM
     Indication: Prophylaxis
     Dosage: 35 G (GIVEN FOR THE PREVENTION OSTEOPOROSIS IN POSTMENOPAUSAL WOMEN)
     Route: 048
     Dates: start: 20101007, end: 20160807

REACTIONS (4)
  - Rib fracture [Recovered/Resolved]
  - Off label use [Unknown]
  - Lower respiratory tract infection [Recovered/Resolved]
  - Mouth ulceration [Recovered/Resolved]

NARRATIVE: CASE EVENT DATE: 20180831
